FAERS Safety Report 7455320-3 (Version None)
Quarter: 2011Q2

REPORT INFORMATION
  Report Type: 
  Country: None (occurrence: None)
  Receive Date: 20110503
  Receipt Date: 20110427
  Transmission Date: 20111010
  Serious: Yes (Other)
  Sender: FDA-Public Use
  Company Number: FR-SANOFI-AVENTIS-2011SA018610

PATIENT
  Age: 79 Year
  Sex: Female
  Weight: 71 kg

DRUGS (2)
  1. MULTAQ [Suspect]
     Indication: SINUS RHYTHM
     Route: 048
     Dates: start: 20110216, end: 20110320
  2. PREVISCAN [Concomitant]
     Indication: CARDIAC DISORDER
     Route: 048
     Dates: start: 20100909

REACTIONS (1)
  - VASCULITIS [None]
